FAERS Safety Report 18372876 (Version 3)
Quarter: 2020Q4

REPORT INFORMATION
  Report Type: Spontaneous
  Country: GR (occurrence: GR)
  Receive Date: 20201012
  Receipt Date: 20201119
  Transmission Date: 20210114
  Serious: Yes (Other)
  Sender: FDA-Public Use
  Company Number: GR-PFIZER INC-2020258738

PATIENT
  Sex: Male

DRUGS (3)
  1. EPANUTIN [Suspect]
     Active Substance: PHENYTOIN SODIUM
     Indication: EPILEPSY
     Dosage: 250 MG
     Route: 048
     Dates: start: 1995
  2. EPANUTIN [Suspect]
     Active Substance: PHENYTOIN SODIUM
     Indication: EPILEPSY
     Dosage: 250 MG  (1X2)
     Dates: start: 1990
  3. EPANUTIN [Suspect]
     Active Substance: PHENYTOIN SODIUM
     Dosage: 3 DF, DAILY

REACTIONS (1)
  - Toxicity to various agents [Unknown]
